FAERS Safety Report 18172770 (Version 2)
Quarter: 2020Q3

REPORT INFORMATION
  Report Type: Spontaneous
  Country: FR (occurrence: FR)
  Receive Date: 20200820
  Receipt Date: 20200901
  Transmission Date: 20201103
  Serious: Yes (Life-Threatening, Hospitalization, Other)
  Sender: FDA-Public Use
  Company Number: FR-AUROBINDO-AUR-APL-2020-039476

PATIENT
  Age: 66 Year
  Sex: Male

DRUGS (5)
  1. OXALIPLATIN CONCENTRATE FOR SOLUTION FOR INFUSION [Suspect]
     Active Substance: OXALIPLATIN
     Indication: COLORECTAL CANCER METASTATIC
     Dosage: 100 MILLIGRAM/SQ. METER
     Route: 065
     Dates: start: 20180604
  2. FLUOROURACIL. [Concomitant]
     Active Substance: FLUOROURACIL
     Indication: COLORECTAL CANCER METASTATIC
     Dosage: UNK (INTRA?ARTERIAL HEPATIC)
     Route: 065
     Dates: start: 20180604
  3. METHYLPREDNISOLONE. [Suspect]
     Active Substance: METHYLPREDNISOLONE
     Indication: PREMEDICATION
     Dosage: 120 MILLIGRAM
     Route: 065
     Dates: start: 20180604
  4. MORPHINE SULFATE. [Concomitant]
     Active Substance: MORPHINE SULFATE
     Indication: PAIN
     Dosage: 0.5 MILLIGRAM, EVERY HOUR
     Route: 065
     Dates: start: 20180604, end: 201806
  5. ERBITUX [Concomitant]
     Active Substance: CETUXIMAB
     Indication: COLORECTAL CANCER METASTATIC
     Dosage: UNK
     Route: 042
     Dates: start: 20180604

REACTIONS (7)
  - Chills [Recovered/Resolved]
  - Rectal haemorrhage [Recovered/Resolved]
  - Blood blister [Recovered/Resolved]
  - Monocytopenia [Recovered/Resolved]
  - Immune thrombocytopenia [Recovered/Resolved]
  - Pyrexia [Recovered/Resolved]
  - Oral mucosal blistering [Recovered/Resolved]

NARRATIVE: CASE EVENT DATE: 201806
